FAERS Safety Report 18081606 (Version 1)
Quarter: 2020Q3

REPORT INFORMATION
  Report Type: Spontaneous
  Country: CA (occurrence: CA)
  Receive Date: 20200728
  Receipt Date: 20200728
  Transmission Date: 20201103
  Serious: Yes (Hospitalization)
  Sender: FDA-Public Use
  Company Number: CA-PURDUE-USA-2020-0159667

PATIENT
  Age: 11 Year
  Sex: Male
  Weight: 37 kg

DRUGS (8)
  1. CEFIXIME. [Concomitant]
     Active Substance: CEFIXIME
  2. PULMICORT TURBUHALER [Concomitant]
     Active Substance: BUDESONIDE
  3. BIPHENTIN [Suspect]
     Active Substance: METHYLPHENIDATE
     Indication: PRODUCT USED FOR UNKNOWN INDICATION
     Dosage: 10 MG, DAILY
     Route: 048
  4. AZITHROMYCIN ANHYDROUS. [Concomitant]
     Active Substance: AZITHROMYCIN ANHYDROUS
  5. CLAVULIN                           /00756801/ [Concomitant]
     Active Substance: AMOXICILLIN\CLAVULANIC ACID
  6. CEFTRIAXONE. [Concomitant]
     Active Substance: CEFTRIAXONE
  7. BIPHENTIN [Suspect]
     Active Substance: METHYLPHENIDATE
     Dosage: 15 MG, DAILY
     Route: 048
  8. SYMBICORT [Concomitant]
     Active Substance: BUDESONIDE\FORMOTEROL FUMARATE DIHYDRATE
     Dosage: UNK (STRENGTH 200/6)

REACTIONS (1)
  - Sinusitis [Recovering/Resolving]
